FAERS Safety Report 9542571 (Version 1)
Quarter: 2013Q2

REPORT INFORMATION
  Report Type: Spontaneous
  Country: US (occurrence: None)
  Receive Date: 20130524
  Receipt Date: 20130524
  Transmission Date: 20140414
  Serious: No
  Sender: FDA-Public Use
  Company Number: PHEH2012US025383

PATIENT
  Age: 57 Year
  Sex: Female
  Weight: 79.4 kg

DRUGS (7)
  1. GILENYA (FINGOLIMOD) CAPSULE, 0.5MG [Suspect]
     Indication: MULTIPLE SCLEROSIS
     Route: 048
     Dates: start: 20121211
  2. NEURONTIN (GABAPENTIN) [Concomitant]
  3. VITAMIN (ASCORBIC ACID, CALCIUM PANTOTHENATE, CALCIUM PHOSPHATE, ERGOCALCIFEROL, FERROUS FUMARATE)) [Concomitant]
  4. B12 (CYANOCOBALAMIN-TANNIN COMPLEX) [Concomitant]
  5. FLEXERIL (CYCLOBENZAPRINE HYDROCHLORIDE) [Concomitant]
  6. ALEVA (EBASTINE) [Concomitant]
  7. AMBIEN (ZOLPIDEM TARTRAETE) [Concomitant]

REACTIONS (7)
  - Pain [None]
  - Chills [None]
  - Pyrexia [None]
  - Fatigue [None]
  - Nausea [None]
  - Influenza like illness [None]
  - Back pain [None]
